FAERS Safety Report 9521278 (Version 1)
Quarter: 2013Q1

REPORT INFORMATION
  Report Type: Spontaneous
  Country: US (occurrence: None)
  Receive Date: 20130305
  Receipt Date: 20130305
  Transmission Date: 20140127
  Serious: Yes (Disabling)
  Sender: FDA-Public Use
  Company Number: 163-21880-12072479

PATIENT
  Age: 65 Year
  Sex: Female
  Weight: 88.45 kg

DRUGS (13)
  1. REVLIMID (LENALIDOMIDE) (CAPSULES) [Suspect]
     Indication: PLASMA CELL MYELOMA
     Dosage: 9.375 MG, 21 IN 28 D, PO
     Route: 048
     Dates: start: 20111020, end: 201201
  2. LEXAPRO (ESCITALOPRAM OXALATE) (UNKNOWN) [Concomitant]
  3. LISINOPRIL (LISINOPRIL) (UNKNOWN) [Concomitant]
  4. VITAMIN C [Concomitant]
  5. MVI (MVI) (UNKNOWN) [Concomitant]
  6. POTASSIUM (POTASSIUM) (LIQUID) [Concomitant]
  7. FUROSEMIDE (FUROSEMIDE) (UNKNOWN) [Concomitant]
  8. COUMADIN (WARFARIN SODIUM) (UNKNOWN) [Concomitant]
  9. TEMAZEPAM (TEMAZEPAM) (UNKNOWN) [Concomitant]
  10. PREMARIN (ESTROGENS CONJUGATED) (UNKNOWN) [Concomitant]
  11. OXYCODONE (OXYCODONE) (UNKNOWN) (OXYCODONE) [Concomitant]
  12. VELCADE [Concomitant]
  13. ZOMETA (ZOLEDRONIC ACID) (UNKNOWN) [Concomitant]

REACTIONS (3)
  - Anaemia [None]
  - Plasma cell myeloma [None]
  - Full blood count decreased [None]
